FAERS Safety Report 23679145 (Version 1)
Quarter: 2024Q1

REPORT INFORMATION
  Report Type: Spontaneous
  Country: US (occurrence: None)
  Receive Date: 20240327
  Receipt Date: 20240327
  Transmission Date: 20240409
  Serious: Yes (Death)
  Sender: FDA-Public Use
  Company Number: None

PATIENT
  Age: 62 Year
  Sex: Female
  Weight: 98 kg

DRUGS (11)
  1. HUMIRA [Suspect]
     Active Substance: ADALIMUMAB
     Route: 058
     Dates: start: 2023
  2. HYDROCODENE/APAP [Concomitant]
  3. ACETAMINOPHEN\OXYCODONE HYDROCHLORIDE [Concomitant]
     Active Substance: ACETAMINOPHEN\OXYCODONE HYDROCHLORIDE
  4. CEPHALEXIN [Concomitant]
     Active Substance: CEPHALEXIN
  5. BACTROBAN [Concomitant]
     Active Substance: MUPIROCIN CALCIUM
  6. LIDOCAINE [Concomitant]
     Active Substance: LIDOCAINE
  7. PRALUENT [Concomitant]
     Active Substance: ALIROCUMAB
  8. METHOCARBAMOL [Concomitant]
  9. INSULIN LISPRO [Suspect]
     Active Substance: INSULIN LISPRO
  10. HUMALOG [Concomitant]
  11. NAPROXEN [Concomitant]
     Active Substance: NAPROXEN

REACTIONS (1)
  - Death [None]

NARRATIVE: CASE EVENT DATE: 20240325
